FAERS Safety Report 23542960 (Version 2)
Quarter: 2024Q2

REPORT INFORMATION
  Report Type: Spontaneous
  Country: US (occurrence: US)
  Receive Date: 20240220
  Receipt Date: 20240614
  Transmission Date: 20240716
  Serious: No
  Sender: FDA-Public Use
  Company Number: US-BRISTOL-MYERS SQUIBB COMPANY-2024-027096

PATIENT
  Age: 67 Year
  Sex: Female
  Weight: 54.88 kg

DRUGS (1)
  1. REVLIMID [Suspect]
     Active Substance: LENALIDOMIDE
     Indication: Plasma cell myeloma
     Route: 048

REACTIONS (4)
  - Abdominal distension [Recovering/Resolving]
  - Constipation [Recovering/Resolving]
  - Alopecia [Recovering/Resolving]
  - Insomnia [Not Recovered/Not Resolved]
